FAERS Safety Report 4455599-6 (Version None)
Quarter: 2004Q3

REPORT INFORMATION
  Report Type: 
  Country: None (occurrence: None)
  Receive Date: 20040922
  Receipt Date: 20040716
  Transmission Date: 20050211
  Serious: Yes (Other)
  Sender: FDA-Public Use
  Company Number: 200417017GDDC

PATIENT
  Sex: Female

DRUGS (2)
  1. INDAPAMIDE [Suspect]
     Indication: ESSENTIAL HYPERTENSION
     Route: 048
  2. VERAPAMIL [Concomitant]

REACTIONS (3)
  - CIRCULATORY COLLAPSE [None]
  - HYPOKALAEMIA [None]
  - HYPONATRAEMIA [None]
